FAERS Safety Report 14890063 (Version 1)
Quarter: 2018Q2

REPORT INFORMATION
  Report Type: Spontaneous
  Country: CL (occurrence: CL)
  Receive Date: 20180514
  Receipt Date: 20180514
  Transmission Date: 20180711
  Serious: Yes (Disabling)
  Sender: FDA-Public Use
  Company Number: CL-MERCK KGAA-2047694

PATIENT

DRUGS (2)
  1. NOVOTHYROX [Suspect]
     Active Substance: LEVOTHYROXINE SODIUM
     Indication: PRODUCT USED FOR UNKNOWN INDICATION
  2. SERTRALINE [Suspect]
     Active Substance: SERTRALINE HYDROCHLORIDE

REACTIONS (6)
  - Dyspepsia [None]
  - Deafness [None]
  - General physical health deterioration [Not Recovered/Not Resolved]
  - Hormone level abnormal [None]
  - Laboratory test abnormal [None]
  - Nausea [None]
